FAERS Safety Report 9829408 (Version 1)
Quarter: 2014Q1

REPORT INFORMATION
  Report Type: Spontaneous
  Country: US (occurrence: US)
  Receive Date: 20140120
  Receipt Date: 20140120
  Transmission Date: 20141002
  Serious: Yes (Hospitalization)
  Sender: FDA-Public Use
  Company Number: US-BIOGENIDEC-2014BI004548

PATIENT
  Age: 68 Year
  Sex: Female

DRUGS (14)
  1. AVONEX [Suspect]
     Indication: MULTIPLE SCLEROSIS
     Route: 030
     Dates: start: 20130205
  2. AMIODARONE HCL [Concomitant]
  3. ASPIRIN [Concomitant]
  4. FUROSEMIDE [Concomitant]
  5. HUMALOG MIX 75/25 [Concomitant]
  6. HYDROCODONE-ACETAMINOPHEN [Concomitant]
  7. LANTUS SOLOSTAR [Concomitant]
  8. LIPITOR [Concomitant]
  9. LISINOPRIL-HYDROCHLOROTHIAZIDE [Concomitant]
  10. METOPROLOL SUCCINATE ER [Concomitant]
  11. POTASSIUM CHLORIDE CRYSTALS ER [Concomitant]
  12. SYNTHROID [Concomitant]
  13. VESICARE [Concomitant]
  14. XANAX [Concomitant]

REACTIONS (3)
  - Arterial occlusive disease [Unknown]
  - Pain in jaw [Unknown]
  - Dyspnoea [Unknown]
